FAERS Safety Report 5134005-2 (Version None)
Quarter: 2006Q4

REPORT INFORMATION
  Report Type: 
  Country: None (occurrence: None)
  Receive Date: 20061019
  Receipt Date: 20061008
  Transmission Date: 20070319
  Serious: Yes (Life-Threatening, Hospitalization, Other)
  Sender: FDA-Public Use
  Company Number: 2006091239

PATIENT
  Age: 38 Year
  Sex: Female

DRUGS (3)
  1. NIFEDIPINE [Suspect]
     Indication: TOCOLYSIS
     Dosage: 30 MG (30 MG), ORAL
     Route: 048
  2. NIFEDIPINE [Suspect]
     Indication: TOCOLYSIS
     Dosage: 60 MG (30 MG, 2 IN 1 D), ORAL
     Route: 048
  3. BETAMETHASONE [Concomitant]

REACTIONS (8)
  - ATRIAL FIBRILLATION [None]
  - BLOOD POTASSIUM DECREASED [None]
  - CHEST PAIN [None]
  - DRUG EXPOSURE DURING PREGNANCY [None]
  - HEART RATE INCREASED [None]
  - HEART RATE IRREGULAR [None]
  - OFF LABEL USE [None]
  - PALPITATIONS [None]
